FAERS Safety Report 7259506-2 (Version None)
Quarter: 2011Q1

REPORT INFORMATION
  Report Type: 
  Country: None (occurrence: None)
  Receive Date: 20110129
  Receipt Date: 20100211
  Transmission Date: 20110831
  Serious: Yes (Other)
  Sender: FDA-Public Use
  Company Number: US-PFIZER INC-2010020899

PATIENT
  Sex: Female

DRUGS (2)
  1. SUMATRIPTAN SUCCINATE AND NAPROXEN SODIUM [Suspect]
     Indication: MIGRAINE
     Dosage: UNK
  2. RELPAX [Suspect]
     Indication: MIGRAINE
     Dosage: UNK
     Route: 048

REACTIONS (1)
  - THROAT TIGHTNESS [None]
